FAERS Safety Report 5106542-8 (Version None)
Quarter: 2006Q3

REPORT INFORMATION
  Report Type: 
  Country: None (occurrence: None)
  Receive Date: 20060918
  Receipt Date: 20041209
  Transmission Date: 20061208
  Serious: Yes (Other)
  Sender: FDA-Public Use
  Company Number: US-GLAXOSMITHKLINE-A0537652A

PATIENT
  Sex: Female
  Weight: 68.2 kg

DRUGS (6)
  1. PAXIL [Suspect]
     Indication: ANXIETY
     Dosage: 20MG UNKNOWN
     Route: 048
     Dates: start: 19990101, end: 20040730
  2. VICODIN [Suspect]
     Indication: DRUG USE FOR UNKNOWN INDICATION
     Dosage: 5TAB SINGLE DOSE
     Route: 048
     Dates: start: 20000101, end: 20000101
  3. ORTHO-NOVUM 1/35 [Concomitant]
     Indication: DRUG USE FOR UNKNOWN INDICATION
  4. ALLEGRA [Concomitant]
  5. DONNATAL [Concomitant]
  6. PROTONIX [Concomitant]

REACTIONS (30)
  - AKATHISIA [None]
  - ANXIETY [None]
  - APATHY [None]
  - AUTONOMIC NERVOUS SYSTEM IMBALANCE [None]
  - BLOOD PRESSURE DECREASED [None]
  - BRADYCARDIA [None]
  - BURNING SENSATION [None]
  - CHEST DISCOMFORT [None]
  - CONVULSION [None]
  - DIARRHOEA [None]
  - DIZZINESS [None]
  - DRUG WITHDRAWAL SYNDROME [None]
  - DYSPNOEA [None]
  - HEART RATE INCREASED [None]
  - HYPERACUSIS [None]
  - HYPERHIDROSIS [None]
  - INSOMNIA [None]
  - MUSCLE TWITCHING [None]
  - NAUSEA [None]
  - PALPITATIONS [None]
  - PARAESTHESIA [None]
  - PARKINSONISM [None]
  - PHOTOSENSITIVITY REACTION [None]
  - POST-TRAUMATIC STRESS DISORDER [None]
  - SINUS ARREST [None]
  - SUICIDE ATTEMPT [None]
  - SUPRAVENTRICULAR EXTRASYSTOLES [None]
  - SYNCOPE [None]
  - TACHYCARDIA [None]
  - WEIGHT DECREASED [None]
